FAERS Safety Report 7801408-4 (Version None)
Quarter: 2011Q4

REPORT INFORMATION
  Report Type: 
  Country: None (occurrence: None)
  Receive Date: 20111006
  Receipt Date: 20111006
  Transmission Date: 20120403
  Serious: Yes (Hospitalization)
  Sender: FDA-Public Use
  Company Number: None

PATIENT
  Age: 33 Year
  Sex: Male
  Weight: 115.9 kg

DRUGS (2)
  1. CARBAMAZEPINE [Suspect]
     Indication: CONVULSION
     Dosage: 200MG TID PO RECENT RESTART W/INCREASE
     Route: 048
  2. ALBUTEROL [Concomitant]

REACTIONS (7)
  - GAIT DISTURBANCE [None]
  - INCORRECT DOSE ADMINISTERED [None]
  - SPEECH DISORDER [None]
  - ANTICONVULSANT DRUG LEVEL INCREASED [None]
  - ANTICONVULSANT DRUG LEVEL BELOW THERAPEUTIC [None]
  - CONVULSION [None]
  - TREATMENT NONCOMPLIANCE [None]
